FAERS Safety Report 25951184 (Version 1)
Quarter: 2025Q4

REPORT INFORMATION
  Report Type: Spontaneous
  Country: TH (occurrence: TH)
  Receive Date: 20251023
  Receipt Date: 20251023
  Transmission Date: 20260118
  Serious: Yes (Other)
  Sender: UNICHEM
  Company Number: TH-UNICHEM LABORATORIES LIMITED-UNI-2025-TH-003555

PATIENT

DRUGS (1)
  1. PRIMAQUINE [Suspect]
     Active Substance: PRIMAQUINE
     Indication: Glucose-6-phosphate dehydrogenase deficiency
     Dosage: UNK
     Route: 048

REACTIONS (2)
  - Alanine aminotransferase increased [Unknown]
  - Aspartate aminotransferase increased [Unknown]
